FAERS Safety Report 13653375 (Version 1)
Quarter: 2017Q2

REPORT INFORMATION
  Report Type: Spontaneous
  Country: US (occurrence: US)
  Receive Date: 20170614
  Receipt Date: 20170614
  Transmission Date: 20170830
  Serious: No
  Sender: FDA-Public Use
  Company Number: US-ROCHE-1144949

PATIENT
  Sex: Female

DRUGS (11)
  1. ARIMIDEX [Concomitant]
     Active Substance: ANASTROZOLE
  2. CYTOXAN [Concomitant]
     Active Substance: CYCLOPHOSPHAMIDE
     Route: 065
     Dates: start: 199607
  3. AVASTIN [Suspect]
     Active Substance: BEVACIZUMAB
     Indication: PRODUCT USED FOR UNKNOWN INDICATION
     Route: 065
  4. CARBOPLATIN. [Concomitant]
     Active Substance: CARBOPLATIN
  5. ZOMETA [Concomitant]
     Active Substance: ZOLEDRONIC ACID
  6. THIOTEPA. [Concomitant]
     Active Substance: THIOTEPA
  7. TAXOTERE [Concomitant]
     Active Substance: DOCETAXEL
  8. XELODA [Suspect]
     Active Substance: CAPECITABINE
     Indication: BREAST CANCER FEMALE
     Route: 065
  9. XELODA [Suspect]
     Active Substance: CAPECITABINE
     Indication: HAEMATOLOGICAL MALIGNANCY
     Dosage: DOSE REDUCED
     Route: 065
  10. TAMOXIFEN [Concomitant]
     Active Substance: TAMOXIFEN
  11. VP-16 [Concomitant]
     Active Substance: ETOPOSIDE
     Route: 065
     Dates: start: 199607

REACTIONS (1)
  - Palmar-plantar erythrodysaesthesia syndrome [Unknown]
